FAERS Safety Report 20868983 (Version 1)
Quarter: 2022Q2

REPORT INFORMATION
  Report Type: Report from Study
  Country: US (occurrence: US)
  Receive Date: 20220524
  Receipt Date: 20220524
  Transmission Date: 20220721
  Serious: Yes (Hospitalization, Other)
  Sender: FDA-Public Use
  Company Number: US-BRISTOL-MYERS SQUIBB COMPANY-2022-039996

PATIENT
  Age: 85 Year
  Sex: Female
  Weight: 77.5 kg

DRUGS (1)
  1. REVLIMID [Suspect]
     Active Substance: LENALIDOMIDE
     Indication: Myelodysplastic syndrome
     Dosage: DAILY 21 DAYS.
     Route: 048

REACTIONS (4)
  - Cerebrovascular accident [Unknown]
  - Polyp [Unknown]
  - Diarrhoea [Unknown]
  - Depressed mood [Unknown]
